FAERS Safety Report 4941401-2 (Version None)
Quarter: 2006Q1

REPORT INFORMATION
  Report Type: 
  Country: None (occurrence: None)
  Receive Date: 20060313
  Receipt Date: 20060301
  Transmission Date: 20060701
  Serious: Yes (Death, Hospitalization, Other)
  Sender: FDA-Public Use
  Company Number: US-MERCK-0603USA00468

PATIENT
  Age: 82 Year
  Sex: Male
  Weight: 75 kg

DRUGS (2)
  1. VIOXX [Suspect]
     Indication: ARTHRITIS
     Route: 048
     Dates: start: 20000609, end: 20030121
  2. VIOXX [Suspect]
     Indication: PAIN IN EXTREMITY
     Route: 048
     Dates: start: 20000609, end: 20030121

REACTIONS (5)
  - DEATH [None]
  - FLANK PAIN [None]
  - HEART RATE IRREGULAR [None]
  - MYOCARDIAL INFARCTION [None]
  - NEOPLASM MALIGNANT [None]
